FAERS Safety Report 15130378 (Version 7)
Quarter: 2018Q4

REPORT INFORMATION
  Report Type: Spontaneous
  Country: ES (occurrence: ES)
  Receive Date: 20180711
  Receipt Date: 20181205
  Transmission Date: 20190204
  Serious: Yes (Hospitalization, Other)
  Sender: FDA-Public Use
  Company Number: ES-PFIZER INC-2018275221

PATIENT
  Age: 74 Year
  Sex: Female

DRUGS (15)
  1. QUETIAPINE. [Suspect]
     Active Substance: QUETIAPINE
     Dosage: 25 MG, 1X/DAY (0-0-1)
  2. RISPERIDONE. [Interacting]
     Active Substance: RISPERIDONE
     Dosage: 1 (UNITS AND FREQUENCY UNKNOWN)
     Dates: start: 201708
  3. AMLODIPINE [Concomitant]
     Active Substance: AMLODIPINE BESYLATE
     Dosage: 5 MG, 1X/DAY (1-0-0)
  4. LEVETIRACETAM. [Suspect]
     Active Substance: LEVETIRACETAM
     Dosage: 500 MG, 2X/DAY (1-0-1)
  5. PARACETAMOL [Concomitant]
     Active Substance: ACETAMINOPHEN
     Dosage: 1 G, 3X/DAY (1-1-1)
  6. LOSARTAN HYDROCHLOROTHIAZIDE ACTAVIS [Concomitant]
     Active Substance: HYDROCHLOROTHIAZIDE\LOSARTAN POTASSIUM
     Dosage: 1 UNK, DAILY (AM) (1-0-0)
  7. LEVETIRACETAM. [Suspect]
     Active Substance: LEVETIRACETAM
     Dosage: 1000 MG, 2X/DAY
  8. AMIODARONE [Concomitant]
     Active Substance: AMIODARONE
     Dosage: 200 MG, UNK (0-1-0)
  9. FLUOXETINE [Interacting]
     Active Substance: FLUOXETINE HYDROCHLORIDE
     Indication: DEPRESSION
     Dosage: 20 MG, 1X/DAY (1-0-0)
  10. LEVETIRACETAM. [Suspect]
     Active Substance: LEVETIRACETAM
     Dosage: 500 MG, ALTERNATE DAY
     Dates: start: 201706, end: 201708
  11. BISOPROLOL [Concomitant]
     Active Substance: BISOPROLOL
     Dosage: 2.5 MG, UNK (1-1/2-0)
  12. PRAVASTATIN. [Concomitant]
     Active Substance: PRAVASTATIN
     Dosage: 20 MG, 1X/DAY (0-0-1)
  13. LEVETIRACETAM. [Suspect]
     Active Substance: LEVETIRACETAM
     Dosage: 1000 MG, 1X/DAY
     Dates: start: 201706, end: 201708
  14. RISPERIDONE. [Interacting]
     Active Substance: RISPERIDONE
     Dosage: UNK
  15. FLUPENTIXOL W/MELITRACEN [Concomitant]
     Dosage: 1 UNK, 1X/DAY (AM) (1-0-0)

REACTIONS (8)
  - Suicidal ideation [Unknown]
  - Serotonin syndrome [Unknown]
  - Tinnitus [Unknown]
  - Urine output decreased [Unknown]
  - Oedema [Unknown]
  - Weight increased [Unknown]
  - Hyperthermia [Unknown]
  - Drug interaction [Unknown]
